FAERS Safety Report 12383737 (Version 6)
Quarter: 2016Q4

REPORT INFORMATION
  Report Type: Report from Study
  Country: US (occurrence: US)
  Receive Date: 20160519
  Receipt Date: 20161125
  Transmission Date: 20170207
  Serious: Yes (Hospitalization)
  Sender: FDA-Public Use
  Company Number: US-AMGEN-USASL2016062102

PATIENT
  Age: 74 Year
  Sex: Female

DRUGS (6)
  1. ENBREL [Suspect]
     Active Substance: ETANERCEPT
     Dosage: UNK, Q2WK
     Route: 065
  2. PREDNISONE. [Concomitant]
     Active Substance: PREDNISONE
     Dosage: 6 MG, QD
  3. ENBREL [Suspect]
     Active Substance: ETANERCEPT
     Dosage: UNK
     Route: 065
     Dates: start: 20160415
  4. MORPHINE [Concomitant]
     Active Substance: MORPHINE
     Dosage: 15 MG, Q 4 HRS
     Route: 048
  5. ENBREL [Suspect]
     Active Substance: ETANERCEPT
     Indication: RHEUMATOID ARTHRITIS
     Dosage: 50 MG, WEEKLY
     Route: 065
     Dates: start: 2005
  6. MORPHINE [Concomitant]
     Active Substance: MORPHINE
     Dosage: 50 MG, TWICE IN 24 HOURS

REACTIONS (12)
  - Pain in extremity [Not Recovered/Not Resolved]
  - Dental operation [Unknown]
  - Back pain [Not Recovered/Not Resolved]
  - Dyspnoea [Unknown]
  - Injection site pain [Unknown]
  - Arthralgia [Not Recovered/Not Resolved]
  - Drug interaction [Unknown]
  - Accidental overdose [Unknown]
  - Off label use [Unknown]
  - Neck pain [Not Recovered/Not Resolved]
  - Memory impairment [Unknown]
  - Tooth extraction [Unknown]

NARRATIVE: CASE EVENT DATE: 2015
